FAERS Safety Report 6494924-1 (Version None)
Quarter: 2009Q4

REPORT INFORMATION
  Report Type: 
  Country: None (occurrence: None)
  Receive Date: 20091214
  Receipt Date: 20090526
  Transmission Date: 20100525
  Serious: No
  Sender: FDA-Public Use
  Company Number: US-BRISTOL-MYERS SQUIBB COMPANY-14581441

PATIENT
  Age: 8 Year
  Sex: Male

DRUGS (3)
  1. ABILIFY [Suspect]
     Indication: ABNORMAL BEHAVIOUR
     Dosage: DURATION:LESS THAN 1 WEEK.
     Route: 048
     Dates: start: 20090223, end: 20090409
  2. STRATTERA [Suspect]
     Indication: ATTENTION DEFICIT/HYPERACTIVITY DISORDER
  3. TENEX [Suspect]
     Indication: ATTENTION DEFICIT/HYPERACTIVITY DISORDER
     Dosage: APPROX FOR 1 YR
     Dates: start: 20090210

REACTIONS (4)
  - AGGRESSION [None]
  - ANGER [None]
  - HEADACHE [None]
  - SCOTOMA [None]
